FAERS Safety Report 5535134-1 (Version None)
Quarter: 2007Q4

REPORT INFORMATION
  Report Type: 
  Country: None (occurrence: None)
  Receive Date: 20071203
  Receipt Date: 20071107
  Transmission Date: 20080405
  Serious: Yes (Hospitalization)
  Sender: FDA-Public Use
  Company Number: 6038979

PATIENT
  Age: 87 Year
  Sex: Male

DRUGS (7)
  1. CONGESCOR                    (BISOPROLOL FUMARATE) [Suspect]
     Indication: ESSENTIAL HYPERTENSION
     Dosage: 1, 25 MG (1, 25 MG, 1 IN 1 D)
     Dates: start: 20070613, end: 20070706
  2. DIGOXIN [Suspect]
     Indication: ATRIAL FIBRILLATION
     Dosage: 0.5 MG (0, 125 MG, 4 IN 1 D), ORAL
     Route: 048
     Dates: start: 20070613, end: 20070706
  3. CARVEDILOL [Concomitant]
  4. RAMIPRIL [Concomitant]
  5. TIAMAZOLE                      (THIAMAZOLE) [Concomitant]
  6. WARFARIN SODIUM [Concomitant]
  7. FUROSEMIDE                        (SPIRONOLACTONE, FUROSEMIDE) [Concomitant]

REACTIONS (4)
  - BRADYCARDIA [None]
  - BUNDLE BRANCH BLOCK LEFT [None]
  - DISORIENTATION [None]
  - FALL [None]
